FAERS Safety Report 17549358 (Version 1)
Quarter: 2020Q1

REPORT INFORMATION
  Report Type: Spontaneous
  Country: US (occurrence: US)
  Receive Date: 20200309
  Receipt Date: 20200309
  Transmission Date: 20200409
  Serious: Yes (Hospitalization)
  Sender: FDA-Public Use
  Company Number: None

PATIENT
  Sex: Female

DRUGS (1)
  1. ZARXIO [Suspect]
     Active Substance: FILGRASTIM-SNDZ
     Indication: STEM CELL DONOR
     Dosage: ?          OTHER STRENGTH:480MCG/0.8ML;OTHER DOSE:2 SYRINGES;?
     Route: 058
     Dates: start: 20200306

REACTIONS (1)
  - Hospitalisation [None]
